FAERS Safety Report 11852611 (Version 2)
Quarter: 2016Q1

REPORT INFORMATION
  Report Type: Spontaneous
  Country: JP (occurrence: JP)
  Receive Date: 20151218
  Receipt Date: 20160120
  Transmission Date: 20160526
  Serious: Yes (Other)
  Sender: FDA-Public Use
  Company Number: JP-MYLANLABS-2015M1045320

PATIENT

DRUGS (1)
  1. LEVOFLOXACIN MYLAN [Suspect]
     Active Substance: LEVOFLOXACIN
     Indication: URINARY TRACT INFECTION
     Dosage: 500 MG/DAY
     Route: 048

REACTIONS (5)
  - Urinary retention [None]
  - Urinary tract infection bacterial [Recovering/Resolving]
  - Bacteraemia [Recovering/Resolving]
  - Pneumonia [None]
  - Pyelonephritis [None]
